FAERS Safety Report 12077790 (Version 6)
Quarter: 2016Q2

REPORT INFORMATION
  Report Type: Spontaneous
  Country: BR (occurrence: BR)
  Receive Date: 20160215
  Receipt Date: 20160401
  Transmission Date: 20160815
  Serious: Yes (Congenital Anomaly, Other)
  Sender: FDA-Public Use
  Company Number: PHHY2016BR018905

PATIENT

DRUGS (1)
  1. DICLOFENAC [Suspect]
     Active Substance: DICLOFENAC
     Indication: FOETAL EXPOSURE DURING PREGNANCY
     Dosage: (MATERNAL DOSE: 150 MG PER DAY)
     Route: 064

REACTIONS (10)
  - Ductus arteriosus premature closure [Recovered/Resolved]
  - Right ventricular dysfunction [Recovered/Resolved]
  - Hydrops foetalis [Recovered/Resolved]
  - Hydrocele [Recovered/Resolved]
  - Dilatation ventricular [Recovered/Resolved]
  - Pulmonary hypertension [Recovered/Resolved]
  - Tricuspid valve incompetence [Recovered/Resolved]
  - Pleural effusion [Recovered/Resolved]
  - Cardiomegaly [Recovered/Resolved]
  - Foetal exposure during pregnancy [Unknown]
